FAERS Safety Report 7682402-3 (Version None)
Quarter: 2011Q3

REPORT INFORMATION
  Report Type: 
  Country: None (occurrence: None)
  Receive Date: 20110815
  Receipt Date: 20110809
  Transmission Date: 20111222
  Serious: Yes (Death, Hospitalization, Other)
  Sender: FDA-Public Use
  Company Number: BR-BRISTOL-MYERS SQUIBB COMPANY-15668072

PATIENT
  Age: 76 Year
  Sex: Male

DRUGS (8)
  1. CLARITIN [Concomitant]
     Route: 048
  2. IPILIMUMAB [Suspect]
     Indication: MALIGNANT MELANOMA
     Route: 042
     Dates: start: 20101228, end: 20110303
  3. INFLUENZA VACCINE [Suspect]
     Dates: start: 20110505
  4. IVERMECTIN [Concomitant]
     Dosage: 1DF:2TABS
     Route: 048
  5. IMOSEC [Concomitant]
     Dosage: 1DF:1TABS
     Route: 048
  6. METICORTEN [Concomitant]
     Dosage: 1DF:2TABS METICORTEN 20MG
     Route: 048
  7. GLUTAMIN [Concomitant]
     Dosage: 1DF:1SACHET
     Route: 048
  8. ADVANTAN [Concomitant]

REACTIONS (11)
  - SEPSIS [None]
  - ASTHENIA [None]
  - CRANIAL NERVE DISORDER [None]
  - SHOCK [None]
  - RENAL FAILURE [None]
  - SOMNOLENCE [None]
  - COUGH [None]
  - HEPATIC FAILURE [None]
  - THROMBOCYTOPENIA [None]
  - HYPOPITUITARISM [None]
  - URINARY TRACT INFECTION [None]
